FAERS Safety Report 6245941-8 (Version None)
Quarter: 2009Q2

REPORT INFORMATION
  Report Type: 
  Country: None (occurrence: None)
  Receive Date: 20090626
  Receipt Date: 20081106
  Transmission Date: 20091009
  Serious: No
  Sender: FDA-Public Use
  Company Number: A0740330A

PATIENT
  Sex: Female

DRUGS (3)
  1. IMITREX [Suspect]
     Indication: HEADACHE
     Dosage: 100MG AS REQUIRED
     Route: 048
     Dates: start: 20020101
  2. IMITREX [Suspect]
     Route: 045
  3. ESTRADIOL [Concomitant]

REACTIONS (3)
  - DRUG INEFFECTIVE [None]
  - PRODUCT QUALITY ISSUE [None]
  - THROAT TIGHTNESS [None]
